FAERS Safety Report 5598105-5 (Version None)
Quarter: 2008Q1

REPORT INFORMATION
  Report Type: 
  Country: None (occurrence: None)
  Receive Date: 20080122
  Receipt Date: 20080111
  Transmission Date: 20080703
  Serious: Yes (Hospitalization, Other)
  Sender: FDA-Public Use
  Company Number: PHHO2007JP15622

PATIENT
  Age: 40 Year
  Sex: Male
  Weight: 86 kg

DRUGS (30)
  1. AMN107 [Suspect]
     Indication: CHRONIC MYELOID LEUKAEMIA
     Dosage: UNK, NO TREATMENT
     Dates: start: 20071011, end: 20071017
  2. AMN107 [Suspect]
     Dosage: 400 MG, UNK
     Route: 048
     Dates: start: 20071018
  3. AMN107 [Suspect]
     Dosage: 400MG DAILY
     Route: 048
     Dates: start: 20060823, end: 20071010
  4. BASEN [Concomitant]
     Dates: start: 20070308
  5. KETOPROFEN [Concomitant]
     Dates: start: 20070916
  6. ISODINE [Concomitant]
  7. CRESTOR [Concomitant]
  8. PLAVIX [Concomitant]
  9. DIOVAN [Concomitant]
  10. HEPARIN SODIUM INJECTION [Concomitant]
  11. NITOROL [Concomitant]
  12. NEGMIN [Concomitant]
  13. HYPOETHANOLUM [Concomitant]
  14. XYLOCAINE [Concomitant]
  15. IOPAMIDOL [Concomitant]
  16. ATROPINE SULFATE [Concomitant]
  17. PENTAGIN [Concomitant]
  18. ATARAX [Concomitant]
  19. ACTOS [Concomitant]
  20. SIGMART [Suspect]
  21. RINDERON-VG [Concomitant]
  22. MAINTATE [Concomitant]
  23. LOXOPROFEN [Concomitant]
  24. FLOMOX [Concomitant]
  25. AZUNOL [Concomitant]
  26. AMARYL [Concomitant]
  27. MINOCYCLINE HYDROCHLORIDE [Concomitant]
  28. ZANTAC [Concomitant]
  29. LOPRESSOR [Concomitant]
  30. MEVALOTIN [Concomitant]

REACTIONS (21)
  - ANGINA PECTORIS [None]
  - ARTERIOSPASM CORONARY [None]
  - BLOOD MAGNESIUM DECREASED [None]
  - CARDIOVASCULAR DISORDER [None]
  - CATHETERISATION CARDIAC [None]
  - CHEST DISCOMFORT [None]
  - CONTUSION [None]
  - CORONARY ANGIOPLASTY [None]
  - CORONARY ARTERIAL STENT INSERTION [None]
  - CORONARY ARTERY STENOSIS [None]
  - ELECTROCARDIOGRAM ST SEGMENT DEPRESSION [None]
  - ELECTROCARDIOGRAM ST SEGMENT ELEVATION [None]
  - EXERCISE ELECTROCARDIOGRAM ABNORMAL [None]
  - EXERCISE TEST ABNORMAL [None]
  - FALL [None]
  - GINGIVAL SWELLING [None]
  - GINGIVITIS [None]
  - LOSS OF CONSCIOUSNESS [None]
  - MOUTH ULCERATION [None]
  - MYOCARDIAL ISCHAEMIA [None]
  - VENTRICULAR EXTRASYSTOLES [None]
